FAERS Safety Report 13022868 (Version 2)
Quarter: 2017Q1

REPORT INFORMATION
  Report Type: Report from Study
  Country: HU (occurrence: HU)
  Receive Date: 20161213
  Receipt Date: 20170220
  Transmission Date: 20170428
  Serious: Yes (Death)
  Sender: FDA-Public Use
  Company Number: HU-JNJFOC-20161208730

PATIENT
  Sex: Male
  Weight: 67 kg

DRUGS (11)
  1. CAVINTON [Concomitant]
     Active Substance: VINPOCETINE
     Route: 065
  2. ANAFRANIL [Concomitant]
     Active Substance: CLOMIPRAMINE HYDROCHLORIDE
     Route: 065
  3. RAMACE [Concomitant]
     Route: 065
  4. ATORVOX [Concomitant]
     Active Substance: ATORVASTATIN
     Route: 065
  5. CHINOTAL [Concomitant]
     Active Substance: PENTOXIFYLLINE
     Route: 065
  6. STELARA [Suspect]
     Active Substance: USTEKINUMAB
     Indication: PSORIASIS
     Route: 058
     Dates: start: 20150915
  7. NOOTROPIL [Concomitant]
     Active Substance: PIRACETAM
     Route: 065
  8. TIAGER [Concomitant]
     Route: 065
  9. ISOPTIN [Concomitant]
     Active Substance: VERAPAMIL HYDROCHLORIDE
     Route: 065
  10. SUPRASTIN [Concomitant]
     Active Substance: CHLOROPYRAMINE HYDROCHLORIDE
     Route: 065
  11. HUMULIN N [Concomitant]
     Active Substance: INSULIN HUMAN
     Dosage: 22 UNIT, 18 UNIT
     Route: 065

REACTIONS (1)
  - Cerebrovascular accident [Fatal]
